FAERS Safety Report 9277063 (Version 2)
Quarter: 2013Q2

REPORT INFORMATION
  Report Type: Spontaneous
  Country: FR (occurrence: FR)
  Receive Date: 20130507
  Receipt Date: 20130607
  Transmission Date: 20140414
  Serious: Yes (Hospitalization, Other)
  Sender: FDA-Public Use
  Company Number: FR-ROCHE-1221840

PATIENT
  Age: 41 Year
  Sex: Female
  Weight: 45 kg

DRUGS (5)
  1. XOLAIR [Suspect]
     Indication: ASTHMA
     Route: 058
     Dates: start: 20130418, end: 20130418
  2. SERETIDE [Concomitant]
     Route: 065
  3. SINGULAIR [Concomitant]
     Route: 065
  4. AERIUS [Concomitant]
     Route: 065
  5. TARDYFERON [Concomitant]
     Route: 065

REACTIONS (7)
  - Bronchospasm [Recovered/Resolved]
  - Face oedema [Recovered/Resolved]
  - Anaphylactic reaction [Unknown]
  - Asthma [Unknown]
  - Dyspnoea [Unknown]
  - Wheezing [Unknown]
  - Obstructive airways disorder [Unknown]
